FAERS Safety Report 6960431-2 (Version None)
Quarter: 2010Q3

REPORT INFORMATION
  Report Type: 
  Country: None (occurrence: None)
  Receive Date: 20100901
  Receipt Date: 20100827
  Transmission Date: 20110219
  Serious: Yes (Other)
  Sender: FDA-Public Use
  Company Number: JP-SANOFI-AVENTIS-2010SA051333

PATIENT
  Sex: Male

DRUGS (4)
  1. LASIX [Suspect]
     Dosage: DOSAGE UNKNOWN
     Route: 048
     Dates: start: 20080301, end: 20080401
  2. ALL OTHER THERAPEUTIC PRODUCTS [Suspect]
  3. ALL OTHER THERAPEUTIC PRODUCTS [Suspect]
  4. ALL OTHER THERAPEUTIC PRODUCTS [Suspect]

REACTIONS (1)
  - STEVENS-JOHNSON SYNDROME [None]
